FAERS Safety Report 5019809-9 (Version None)
Quarter: 2006Q2

REPORT INFORMATION
  Report Type: 
  Country: None (occurrence: None)
  Receive Date: 20060607
  Receipt Date: 20060522
  Transmission Date: 20061013
  Serious: Yes (Other)
  Sender: FDA-Public Use
  Company Number: PHEH2006US06734

PATIENT
  Age: 82 Year
  Sex: Male

DRUGS (7)
  1. ENABLEX [Suspect]
     Indication: ENURESIS
     Dosage: 7.5 MG, QD
     Dates: start: 20060516
  2. COUMADIN [Concomitant]
     Dosage: 2.5 MG, QD
  3. METOPROLOL [Concomitant]
     Dosage: 5 MG, QD
  4. LASIX [Concomitant]
     Dosage: 80 MG, BID
  5. DIGOXIN [Concomitant]
     Dosage: 0.125 MG, UNK
  6. ZOCOR [Concomitant]
  7. CELEXA [Concomitant]

REACTIONS (5)
  - ABNORMAL BEHAVIOUR [None]
  - CONFUSIONAL STATE [None]
  - DISORIENTATION [None]
  - HALLUCINATION, VISUAL [None]
  - URINARY RETENTION [None]
